FAERS Safety Report 26063582 (Version 1)
Quarter: 2025Q4

REPORT INFORMATION
  Report Type: Spontaneous
  Country: AU (occurrence: EU)
  Receive Date: 20251119
  Receipt Date: 20251119
  Transmission Date: 20260117
  Serious: Yes (Other)
  Sender: LEGACY PHARMACEUTICAL PACKAGING
  Company Number: AU-LEGACY PHARMA INC. SEZC-LGP202511-000334

PATIENT
  Age: 36 Year
  Sex: Male

DRUGS (10)
  1. AZATHIOPRINE [Suspect]
     Active Substance: AZATHIOPRINE
     Indication: Orofacial granulomatosis
     Dosage: UNKNOWN
     Route: 065
  2. AZATHIOPRINE [Suspect]
     Active Substance: AZATHIOPRINE
     Indication: Crohn^s disease
  3. In?iximab [Concomitant]
     Indication: Orofacial granulomatosis
     Dosage: UNKNOWN
     Route: 065
  4. In?iximab [Concomitant]
     Indication: Crohn^s disease
  5. TACROLIMUS [Concomitant]
     Active Substance: TACROLIMUS
     Indication: Orofacial granulomatosis
     Dosage: UNKNOWN
     Route: 061
  6. TACROLIMUS [Concomitant]
     Active Substance: TACROLIMUS
     Indication: Crohn^s disease
  7. HYDROXYCHLOROQUINE [Concomitant]
     Active Substance: HYDROXYCHLOROQUINE
     Indication: Orofacial granulomatosis
     Dosage: UNKNOWN
     Route: 065
  8. HYDROXYCHLOROQUINE [Concomitant]
     Active Substance: HYDROXYCHLOROQUINE
     Indication: Crohn^s disease
  9. USTEKINUMAB [Concomitant]
     Active Substance: USTEKINUMAB
     Indication: Orofacial granulomatosis
     Dosage: 520 MILLIGRAM, UNK
     Route: 042
  10. USTEKINUMAB [Concomitant]
     Active Substance: USTEKINUMAB
     Indication: Crohn^s disease
     Dosage: 90 MILLIGRAM, UNK; MAINTENANCE
     Route: 058

REACTIONS (5)
  - Mastoiditis [Recovered/Resolved]
  - Rectal haemorrhage [Recovered/Resolved]
  - Lip swelling [Recovered/Resolved]
  - Infection [Recovered/Resolved]
  - Drug ineffective for unapproved indication [Unknown]
